FAERS Safety Report 25878603 (Version 1)
Quarter: 2025Q4

REPORT INFORMATION
  Report Type: Spontaneous
  Country: CA (occurrence: CA)
  Receive Date: 20251003
  Receipt Date: 20251003
  Transmission Date: 20260118
  Serious: Yes (Hospitalization)
  Sender: VERTEX
  Company Number: CA-VERTEX PHARMACEUTICALS-2025-012007

PATIENT
  Sex: Male

DRUGS (1)
  1. ORKAMBI [Suspect]
     Active Substance: IVACAFTOR\LUMACAFTOR
     Indication: Cystic fibrosis
     Dosage: 200MG LUMACAFTOR/125MG IVACAFTOR
     Route: 048
     Dates: start: 202410, end: 202507

REACTIONS (4)
  - Cystic fibrosis [Unknown]
  - Hepatic steatosis [Unknown]
  - Infective pulmonary exacerbation of cystic fibrosis [Unknown]
  - Liver function test increased [Not Recovered/Not Resolved]
